FAERS Safety Report 6326064-6 (Version None)
Quarter: 2009Q3

REPORT INFORMATION
  Report Type: 
  Country: None (occurrence: None)
  Receive Date: 20090820
  Receipt Date: 20090806
  Transmission Date: 20100115
  Serious: Yes (Hospitalization)
  Sender: FDA-Public Use
  Company Number: JP-000584

PATIENT
  Age: 78 Year
  Sex: Male

DRUGS (7)
  1. DEGARELIX (DEGARELIX) INJECTION 240 MG, INJECTION 160 MG [Suspect]
     Indication: PROSTATE CANCER
     Dosage: 240 MG, 160 MG, SUBCUTANEOUS
     Route: 058
     Dates: start: 20080901, end: 20080901
  2. DEGARELIX (DEGARELIX) INJECTION 240 MG, INJECTION 160 MG [Suspect]
     Indication: PROSTATE CANCER
     Dosage: 240 MG, 160 MG, SUBCUTANEOUS
     Route: 058
     Dates: start: 20080929
  3. ETODOLAC [Suspect]
     Indication: LUMBAR SPINAL STENOSIS
     Dosage: 200 MG BID, ORAL
     Route: 048
     Dates: start: 20081117, end: 20090706
  4. LOXONIN /00890702/ (LOXOPROFEN SODIUM) [Suspect]
     Indication: LUMBAR SPINAL STENOSIS
     Dosage: ORAL
     Route: 048
     Dates: start: 20090706
  5. OPALMON (LIMAPROST) [Concomitant]
  6. GASION (IRSOGLADINE MALEATE) [Concomitant]
  7. SELTOUCH (FELBINAC) [Concomitant]

REACTIONS (7)
  - BLOOD ALBUMIN INCREASED [None]
  - DEHYDRATION [None]
  - HAEMOCONCENTRATION [None]
  - OEDEMA PERIPHERAL [None]
  - PROTEIN TOTAL INCREASED [None]
  - RED BLOOD CELL COUNT INCREASED [None]
  - RENAL FAILURE [None]
